FAERS Safety Report 14404689 (Version 2)
Quarter: 2018Q1

REPORT INFORMATION
  Report Type: Report from Study
  Country: None (occurrence: FR)
  Receive Date: 20180118
  Receipt Date: 20180202
  Transmission Date: 20180509
  Serious: Yes (Hospitalization)
  Sender: FDA-Public Use
  Company Number: FR-ABBVIE-18K-056-2226428-00

PATIENT
  Age: 58 Year
  Sex: Male

DRUGS (1)
  1. DUODOPA [Suspect]
     Active Substance: CARBIDOPA\LEVODOPA
     Indication: PARKINSON^S DISEASE
     Route: 050
     Dates: start: 201701

REACTIONS (5)
  - Device issue [Unknown]
  - Urinary tract infection [Recovered/Resolved]
  - Stoma site inflammation [Unknown]
  - General physical health deterioration [Not Recovered/Not Resolved]
  - Stoma site infection [Unknown]
